FAERS Safety Report 12998764 (Version 7)
Quarter: 2017Q3

REPORT INFORMATION
  Report Type: Spontaneous
  Country: CA (occurrence: CA)
  Receive Date: 20161205
  Receipt Date: 20170823
  Transmission Date: 20171127
  Serious: Yes (Other)
  Sender: FDA-Public Use
  Company Number: CA-PFIZER INC-2016168943

PATIENT
  Age: 66 Year
  Sex: Male

DRUGS (12)
  1. XELJANZ [Suspect]
     Active Substance: TOFACITINIB CITRATE
     Dosage: 0.5 DF, DAILY
     Dates: end: 20160511
  2. XELJANZ [Suspect]
     Active Substance: TOFACITINIB CITRATE
     Dosage: 2.5 MG (HALF TABLET), DAILY
     Route: 048
     Dates: start: 20160830, end: 20161013
  3. XELJANZ [Suspect]
     Active Substance: TOFACITINIB CITRATE
     Dosage: 2.5 MG A.M. AND 5 MG P.M.
     Route: 048
     Dates: start: 20160317, end: 20160424
  4. XELJANZ [Suspect]
     Active Substance: TOFACITINIB CITRATE
     Dosage: 5 MG, 1X/DAY
     Route: 048
     Dates: start: 20160601, end: 201606
  5. XELJANZ [Suspect]
     Active Substance: TOFACITINIB CITRATE
     Dosage: 5 MG, DAILY
     Route: 048
     Dates: start: 2016
  6. XELJANZ [Suspect]
     Active Substance: TOFACITINIB CITRATE
     Dosage: 5 MG, 1X/DAY
     Route: 048
     Dates: start: 20160628, end: 2016
  7. XELJANZ [Suspect]
     Active Substance: TOFACITINIB CITRATE
     Dosage: 5 MG (1DF), 1X/DAY
     Route: 048
  8. XELJANZ [Suspect]
     Active Substance: TOFACITINIB CITRATE
     Dosage: 2.5 MG, DAILY
     Route: 048
     Dates: start: 20160802, end: 20160822
  9. XELJANZ [Suspect]
     Active Substance: TOFACITINIB CITRATE
     Indication: RHEUMATOID ARTHRITIS
     Dosage: 5 MG, 2X/DAY
     Route: 048
     Dates: start: 20160317, end: 20160320
  10. XELJANZ [Suspect]
     Active Substance: TOFACITINIB CITRATE
     Dosage: 5 MG, 1X/DAY
     Route: 048
     Dates: start: 20160321
  11. XELJANZ [Suspect]
     Active Substance: TOFACITINIB CITRATE
     Dosage: 2.5 MG, 1X/DAY: HALF A PILL
     Route: 048
     Dates: start: 2016, end: 20160720
  12. XELJANZ [Suspect]
     Active Substance: TOFACITINIB CITRATE
     Dosage: 0.5 DF, DAILY
     Route: 048
     Dates: end: 20160601

REACTIONS (18)
  - Fatigue [Not Recovered/Not Resolved]
  - Somnolence [Recovered/Resolved]
  - Musculoskeletal chest pain [Not Recovered/Not Resolved]
  - Abdominal pain upper [Recovered/Resolved]
  - Nasal congestion [Recovered/Resolved]
  - Insomnia [Unknown]
  - Headache [Not Recovered/Not Resolved]
  - Painful respiration [Recovered/Resolved]
  - Back pain [Not Recovered/Not Resolved]
  - Dislocation of vertebra [Recovering/Resolving]
  - Oropharyngeal pain [Recovering/Resolving]
  - Dyspepsia [Not Recovered/Not Resolved]
  - Cough [Not Recovered/Not Resolved]
  - Dizziness [Not Recovered/Not Resolved]
  - Nausea [Not Recovered/Not Resolved]
  - Feeling abnormal [Recovered/Resolved]
  - Musculoskeletal stiffness [Unknown]
  - Anxiety [Unknown]

NARRATIVE: CASE EVENT DATE: 2016
